FAERS Safety Report 7040018-6 (Version None)
Quarter: 2010Q4

REPORT INFORMATION
  Report Type: 
  Country: None (occurrence: None)
  Receive Date: 20101012
  Receipt Date: 20101005
  Transmission Date: 20110411
  Serious: Yes (Other)
  Sender: FDA-Public Use
  Company Number: US-AMGEN-QUU443636

PATIENT

DRUGS (1)
  1. EPOGEN [Suspect]
     Indication: PRODUCT USED FOR UNKNOWN INDICATION

REACTIONS (4)
  - BLOOD ALUMINIUM INCREASED [None]
  - HAEMOGLOBIN DECREASED [None]
  - METAL POISONING [None]
  - WHITE BLOOD CELL COUNT DECREASED [None]
